FAERS Safety Report 21738403 (Version 1)
Quarter: 2022Q4

REPORT INFORMATION
  Report Type: Spontaneous
  Country: IT (occurrence: IT)
  Receive Date: 20221216
  Receipt Date: 20221216
  Transmission Date: 20230113
  Serious: Yes (Other)
  Sender: FDA-Public Use
  Company Number: None

PATIENT
  Age: 79 Year
  Sex: Male

DRUGS (2)
  1. CISPLATIN [Suspect]
     Active Substance: CISPLATIN
     Indication: Biliary neoplasm
     Dosage: UNIT DOSE : 31.68 MG, DURATION : 35 DAYS
     Dates: start: 20220928, end: 20221102
  2. GEMCITABINE [Suspect]
     Active Substance: GEMCITABINE
     Indication: Biliary neoplasm
     Dosage: UNIT DOSE : 1267 MG, DURATION : 35 DAYS
     Dates: start: 20220928, end: 20221102

REACTIONS (1)
  - Thrombocytopenia [Recovering/Resolving]

NARRATIVE: CASE EVENT DATE: 20221109
